FAERS Safety Report 9828302 (Version 1)
Quarter: 2014Q1

REPORT INFORMATION
  Report Type: Spontaneous
  Country: JP (occurrence: JP)
  Receive Date: 20140117
  Receipt Date: 20140117
  Transmission Date: 20141002
  Serious: Yes (Death, Hospitalization)
  Sender: FDA-Public Use
  Company Number: JP-ROXANE LABORATORIES, INC.-2014-RO-00044RO

PATIENT
  Age: 66 Year
  Sex: Male

DRUGS (4)
  1. DEXAMETHASONE [Suspect]
     Indication: ALLERGY PROPHYLAXIS
  2. GRANISETRON [Suspect]
     Indication: ALLERGY PROPHYLAXIS
  3. DOCETAXEL [Suspect]
     Indication: GASTRIC CANCER
  4. S-1 [Suspect]
     Indication: GASTRIC CANCER

REACTIONS (2)
  - Malignant ascites [Fatal]
  - Gastrointestinal perforation [Recovered/Resolved]
